FAERS Safety Report 16881085 (Version 1)
Quarter: 2019Q4

REPORT INFORMATION
  Report Type: Report from Study
  Country: BR (occurrence: BR)
  Receive Date: 20191003
  Receipt Date: 20191003
  Transmission Date: 20200122
  Serious: Yes (Other)
  Sender: FDA-Public Use
  Company Number: BR-UCBSA-2017048594

PATIENT
  Age: 55 Year
  Sex: Female
  Weight: 66 kg

DRUGS (10)
  1. LEFLUNOMIDE. [Concomitant]
     Active Substance: LEFLUNOMIDE
     Indication: RHEUMATOID ARTHRITIS
     Dosage: (ALMOST 10 YEARS) (1 TABLET/DAY)
     Route: 048
  2. CIPROFIBRATO [Concomitant]
     Active Substance: CIPROFIBRATE
     Indication: BLOOD TRIGLYCERIDES
     Dosage: 100 MILLIGRAM, ONCE DAILY (QD)
     Route: 048
     Dates: start: 2012
  3. CERTOLIZUMAB PEGOL [Suspect]
     Active Substance: CERTOLIZUMAB PEGOL
     Indication: RHEUMATOID ARTHRITIS
     Dosage: 400 MG, EV 2 WEEKS(QOW)
     Dates: start: 20170609
  4. CERTOLIZUMAB PEGOL [Suspect]
     Active Substance: CERTOLIZUMAB PEGOL
     Indication: PSORIATIC ARTHROPATHY
     Dosage: 200 MG, EV 15 DAYS
     Dates: start: 2017
  5. SINVASTATINA [Concomitant]
     Active Substance: SIMVASTATIN
     Indication: BLOOD CHOLESTEROL INCREASED
     Dosage: (STOP DATE: MANY YEARS AGO)
     Route: 048
  6. CLONAZEPAM. [Concomitant]
     Active Substance: CLONAZEPAM
     Indication: SLEEP DISORDER
     Dosage: 2 MG, ONCE DAILY (QD)
     Route: 048
     Dates: start: 2007
  7. FENOFIBRATE. [Concomitant]
     Active Substance: FENOFIBRATE
     Indication: BLOOD CHOLESTEROL INCREASED
     Dosage: 100 MG, ONCE DAILY (QD)  (MORE THAN 2 YEARS)
     Route: 048
  8. CERTOLIZUMAB PEGOL [Suspect]
     Active Substance: CERTOLIZUMAB PEGOL
     Dosage: 400 MILLIGRAM, MONTHLY (QM)
  9. ALENIA [Concomitant]
     Indication: ASTHMA
     Dosage: 400 MG, 2X/DAY (BID)
     Route: 050
     Dates: start: 2013
  10. BETAMETHASONE. [Concomitant]
     Active Substance: BETAMETHASONE
     Indication: PSORIATIC ARTHROPATHY
     Dosage: (MANY MONTHS AGO)
     Route: 048

REACTIONS (15)
  - Skin exfoliation [Not Recovered/Not Resolved]
  - Axillary pain [Not Recovered/Not Resolved]
  - Tinnitus [Not Recovered/Not Resolved]
  - Lymphadenopathy [Unknown]
  - Dyspnoea [Not Recovered/Not Resolved]
  - Flatulence [Not Recovered/Not Resolved]
  - Tremor [Not Recovered/Not Resolved]
  - Headache [Not Recovered/Not Resolved]
  - Nervousness [Not Recovered/Not Resolved]
  - Influenza [Not Recovered/Not Resolved]
  - Groin pain [Not Recovered/Not Resolved]
  - Psoriasis [Not Recovered/Not Resolved]
  - Body temperature decreased [Not Recovered/Not Resolved]
  - Psoriatic arthropathy [Not Recovered/Not Resolved]
  - Pruritus [Not Recovered/Not Resolved]

NARRATIVE: CASE EVENT DATE: 2017
